FAERS Safety Report 5142791-0 (Version None)
Quarter: 2006Q4

REPORT INFORMATION
  Report Type: 
  Country: None (occurrence: None)
  Receive Date: 20061027
  Receipt Date: 20061013
  Transmission Date: 20070319
  Serious: Yes (Other)
  Sender: FDA-Public Use
  Company Number: US200610002606

PATIENT
  Sex: Male

DRUGS (2)
  1. HUMULIN 70/30 [Suspect]
     Indication: DIABETES MELLITUS
     Dates: end: 20060801
  2. HUMALOG MIX 75/25 [Suspect]
     Indication: DIABETES MELLITUS

REACTIONS (4)
  - ECONOMIC PROBLEM [None]
  - GLYCOSYLATED HAEMOGLOBIN INCREASED [None]
  - RENAL IMPAIRMENT [None]
  - TREATMENT NONCOMPLIANCE [None]
